FAERS Safety Report 17444928 (Version 1)
Quarter: 2020Q1

REPORT INFORMATION
  Report Type: Spontaneous
  Country: JP (occurrence: JP)
  Receive Date: 20200221
  Receipt Date: 20200221
  Transmission Date: 20200409
  Serious: Yes (Other)
  Sender: FDA-Public Use
  Company Number: PHJP2019JP012704

PATIENT
  Age: 75 Year
  Sex: Female

DRUGS (5)
  1. LUNESTA [Suspect]
     Active Substance: ESZOPICLONE
     Indication: PRODUCT USED FOR UNKNOWN INDICATION
     Dosage: UNK
     Route: 065
  2. SYMMETREL [Suspect]
     Active Substance: AMANTADINE HYDROCHLORIDE
     Dosage: 0.5 G, BID
     Route: 065
  3. SYMMETREL [Suspect]
     Active Substance: AMANTADINE HYDROCHLORIDE
     Indication: PARKINSON^S DISEASE
     Dosage: 0.5 G, BID
     Route: 065
  4. BELSOMRA [Suspect]
     Active Substance: SUVOREXANT
     Indication: PRODUCT USED FOR UNKNOWN INDICATION
     Dosage: UNK
     Route: 065
  5. E KEPPRA [Suspect]
     Active Substance: LEVETIRACETAM
     Indication: PRODUCT USED FOR UNKNOWN INDICATION
     Dosage: UNK
     Route: 065

REACTIONS (3)
  - Disability [Unknown]
  - Middle insomnia [Recovered/Resolved]
  - No adverse event [Unknown]
